FAERS Safety Report 11850852 (Version 1)
Quarter: 2015Q4

REPORT INFORMATION
  Report Type: Spontaneous
  Country: US (occurrence: US)
  Receive Date: 20151218
  Receipt Date: 20151218
  Transmission Date: 20160305
  Serious: No
  Sender: FDA-Public Use
  Company Number: US-JNJFOC-20150103889

PATIENT
  Age: 48 Year
  Sex: Female
  Weight: 74.39 kg

DRUGS (7)
  1. VITAMIN B12 [Concomitant]
     Active Substance: CYANOCOBALAMIN
     Indication: ROUTINE HEALTH MAINTENANCE
     Dosage: 5000MCG/DAY??INTERVAL: 13 MONTHS
     Route: 065
     Dates: start: 20141117
  2. CALCIUM [Concomitant]
     Active Substance: CALCIUM
     Indication: ROUTINE HEALTH MAINTENANCE
     Dosage: 1 PILL/DAY??INTERVAL: 13 MONTHS
     Route: 065
     Dates: start: 20141117
  3. MULTIVITAMINES [Concomitant]
     Active Substance: VITAMINS
     Indication: ROUTINE HEALTH MAINTENANCE
     Dosage: 1/DAY??INTERVAL: 13 MONTHS
     Route: 065
  4. WOMENS ROGAINE EXTRA STRENGTH [Suspect]
     Active Substance: MINOXIDIL
     Indication: ALOPECIA
     Dosage: HALF CAPFUL  ONCE PER DAY
     Route: 061
  5. WOMENS ROGAINE EXTRA STRENGTH [Suspect]
     Active Substance: MINOXIDIL
     Route: 061
  6. BIOTENE [Concomitant]
     Active Substance: SODIUM MONOFLUOROPHOSPHATE
     Indication: ROUTINE HEALTH MAINTENANCE
     Dosage: 10000MCG/DAY INTERVAL:13 MONTHS
     Route: 065
     Dates: start: 20141117
  7. VITAMIN D [Concomitant]
     Active Substance: CHOLECALCIFEROL
     Indication: ROUTINE HEALTH MAINTENANCE
     Dosage: 1000 IU/DAY 13 MONTHS
     Route: 065
     Dates: start: 20141117

REACTIONS (1)
  - Hair texture abnormal [Recovered/Resolved]
